FAERS Safety Report 6131695-2 (Version None)
Quarter: 2009Q1

REPORT INFORMATION
  Report Type: 
  Country: None (occurrence: None)
  Receive Date: 20090325
  Receipt Date: 20090317
  Transmission Date: 20090719
  Serious: Yes (Other)
  Sender: FDA-Public Use
  Company Number: GB-ASTRAZENECA-2009GB00507

PATIENT
  Age: 10692 Day
  Sex: Male
  Weight: 63.5 kg

DRUGS (4)
  1. SEROQUEL [Suspect]
     Indication: SCHIZOPHRENIA
     Route: 048
  2. SEROQUEL [Suspect]
     Dosage: SEROQUEL XL
     Route: 048
  3. SEROQUEL [Suspect]
     Dosage: SEROQUEL XL, REDUCED DOSE
     Route: 048
  4. DIAZEPAM [Concomitant]
     Indication: AGITATION
     Route: 048
     Dates: start: 20090101, end: 20090101

REACTIONS (2)
  - EXTRAPYRAMIDAL DISORDER [None]
  - GAIT DISTURBANCE [None]
